FAERS Safety Report 20689646 (Version 1)
Quarter: 2022Q2

REPORT INFORMATION
  Report Type: Spontaneous
  Country: RU (occurrence: RU)
  Receive Date: 20220408
  Receipt Date: 20220408
  Transmission Date: 20220721
  Serious: Yes (Other)
  Sender: FDA-Public Use
  Company Number: RU-SUN PHARMACEUTICAL INDUSTRIES LTD-2022R1-331424

PATIENT
  Age: 55 Year
  Sex: Male

DRUGS (1)
  1. CIPROFLOXACIN\TINIDAZOLE [Suspect]
     Active Substance: CIPROFLOXACIN\TINIDAZOLE
     Indication: Product used for unknown indication
     Dosage: 2 TABLET, DAILY
     Route: 048
     Dates: start: 20220201, end: 20220203

REACTIONS (3)
  - Hallucination [Recovered/Resolved]
  - Dizziness [Recovered/Resolved]
  - Sleep disorder [Recovered/Resolved]

NARRATIVE: CASE EVENT DATE: 20220201
